FAERS Safety Report 18971277 (Version 2)
Quarter: 2021Q1

REPORT INFORMATION
  Report Type: Report from Study
  Country: None (occurrence: US)
  Receive Date: 20210304
  Receipt Date: 20210324
  Transmission Date: 20210420
  Serious: Yes (Hospitalization)
  Sender: FDA-Public Use
  Company Number: US-ABBVIE-21K-163-3759080-00

PATIENT
  Age: 53 Year
  Sex: Female
  Weight: 47.67 kg

DRUGS (6)
  1. DULOXETINE. [Concomitant]
     Active Substance: DULOXETINE
     Indication: ANTIDEPRESSANT THERAPY
  2. COVID?19 VACCINE [Concomitant]
     Route: 030
     Dates: start: 20210123, end: 20210123
  3. HUMIRA [Suspect]
     Active Substance: ADALIMUMAB
     Indication: CROHN^S DISEASE
     Route: 058
     Dates: start: 20201202
  4. ZIPRASIDONE. [Concomitant]
     Active Substance: ZIPRASIDONE
     Indication: PSYCHIATRIC DISORDER PROPHYLAXIS
  5. COVID?19 VACCINE [Concomitant]
     Indication: COVID-19 IMMUNISATION
     Route: 030
     Dates: start: 20210102, end: 20210102
  6. SAPHRIS [Concomitant]
     Active Substance: ASENAPINE MALEATE
     Indication: PSYCHIATRIC DISORDER PROPHYLAXIS

REACTIONS (5)
  - Intestinal obstruction [Recovered/Resolved]
  - Blood lactic acid increased [Recovered/Resolved]
  - Wrong technique in product usage process [Recovered/Resolved]
  - Incorrect dose administered [Recovered/Resolved]
  - Blood albumin decreased [Unknown]

NARRATIVE: CASE EVENT DATE: 20210127
